FAERS Safety Report 6383105-8 (Version None)
Quarter: 2009Q3

REPORT INFORMATION
  Report Type: 
  Country: None (occurrence: None)
  Receive Date: 20090928
  Receipt Date: 20090914
  Transmission Date: 20100115
  Serious: Yes (Other)
  Sender: FDA-Public Use
  Company Number: 8052018

PATIENT
  Age: 60 Year
  Sex: Female
  Weight: 62.2 kg

DRUGS (37)
  1. CIMZIA [Suspect]
     Indication: CROHN'S DISEASE
     Dosage: 400 MG /M SC
     Route: 058
     Dates: start: 20090310
  2. PENTASA [Concomitant]
  3. ADDERALL 10 [Concomitant]
  4. XANAX [Concomitant]
  5. CARAFATE [Concomitant]
  6. CELEXA [Concomitant]
  7. DENAVIR [Concomitant]
  8. ESTRIOL/TESTOSTERONE VAGINAL CREAM [Concomitant]
  9. LODINE [Concomitant]
  10. ALLEGRA [Concomitant]
  11. DIFLUCAN [Concomitant]
  12. NEURONTIN [Concomitant]
  13. INDOMETHACIN [Concomitant]
  14. SYNTHROID [Concomitant]
  15. NEXIUM [Concomitant]
  16. PHENERGAN [Concomitant]
  17. PROGESTERONE [Concomitant]
  18. RENOVA [Concomitant]
  19. SINGULAIR [Concomitant]
  20. SUMATRIPTAN (IMITREX) [Concomitant]
  21. TESTOSTERONE [Concomitant]
  22. TOPAMAX [Concomitant]
  23. TRAMADOL HCL [Concomitant]
  24. TRAZODONE [Concomitant]
  25. VIVELLE [Concomitant]
  26. ACETYL L-CARNITINE/ALPHA LIPOIC ACID [Concomitant]
  27. ALIGN (BIFANTIS) [Concomitant]
  28. CAFFEINE [Concomitant]
  29. CALCIUM CITRATE (MG) [Concomitant]
  30. COQ10 [Concomitant]
  31. FOLIC ACID [Concomitant]
  32. LYSINE [Concomitant]
  33. LOVAZA [Concomitant]
  34. TURMERIC (CURCUMIN) [Concomitant]
  35. VITAMIN D [Concomitant]
  36. ZANTAC [Concomitant]
  37. ZYRTEC [Concomitant]

REACTIONS (1)
  - BREAST CANCER FEMALE [None]
